FAERS Safety Report 7522442-8 (Version None)
Quarter: 2011Q2

REPORT INFORMATION
  Report Type: 
  Country: None (occurrence: None)
  Receive Date: 20110603
  Receipt Date: 20110530
  Transmission Date: 20111010
  Serious: Yes (Other)
  Sender: FDA-Public Use
  Company Number: CA-ABBOTT-11P-028-0729296-00

PATIENT
  Sex: Female
  Weight: 67.646 kg

DRUGS (6)
  1. UNKNOWN MEDICATION [Concomitant]
     Indication: HYPERTENSION
     Route: 048
     Dates: start: 20100101
  2. RIVA-PANTOPRAZOLE [Concomitant]
     Indication: GASTRIC DISORDER
     Route: 048
     Dates: start: 20090101
  3. APO-HYDROXYQUINE [Concomitant]
     Indication: RHEUMATOID ARTHRITIS
     Dosage: 1 + 1/2 TABLET
     Route: 048
     Dates: start: 20050101
  4. AVAPRO [Concomitant]
     Indication: HYPERTENSION
     Route: 048
     Dates: start: 20100101
  5. HUMIRA [Suspect]
     Indication: RHEUMATOID ARTHRITIS
     Route: 058
     Dates: start: 20110225
  6. SYNTHROID [Concomitant]
     Indication: THYROID DISORDER
     Route: 048
     Dates: start: 19910101

REACTIONS (9)
  - RASH PRURITIC [None]
  - ORAL DISORDER [None]
  - BENIGN OVARIAN TUMOUR [None]
  - RASH MACULAR [None]
  - DRY SKIN [None]
  - BACK PAIN [None]
  - BURNING SENSATION [None]
  - DECREASED APPETITE [None]
  - ASTHENIA [None]
